FAERS Safety Report 14702866 (Version 1)
Quarter: 2018Q2

REPORT INFORMATION
  Report Type: Spontaneous
  Country: FR (occurrence: FR)
  Receive Date: 20180402
  Receipt Date: 20180402
  Transmission Date: 20180711
  Serious: Yes (Other)
  Sender: FDA-Public Use
  Company Number: FR-MERCK KGAA-2044860

PATIENT
  Age: 58 Year
  Sex: Male

DRUGS (1)
  1. NOVOTHYROX [Suspect]
     Active Substance: LEVOTHYROXINE SODIUM
     Indication: PRODUCT USED FOR UNKNOWN INDICATION

REACTIONS (30)
  - Negative thoughts [None]
  - Decreased appetite [None]
  - Sleep disorder [None]
  - Malaise [None]
  - Fatigue [None]
  - Pruritus [None]
  - Anxiety [None]
  - Libido decreased [None]
  - Impaired driving ability [None]
  - Hyperhidrosis [None]
  - Mental impairment [None]
  - Migraine [None]
  - Disturbance in attention [None]
  - Impaired work ability [None]
  - Blood cholesterol increased [None]
  - Dizziness [None]
  - Fear of disease [None]
  - Blood triglycerides increased [Not Recovered/Not Resolved]
  - Alanine aminotransferase increased [None]
  - Nightmare [None]
  - Emotional disorder [None]
  - Gastrointestinal motility disorder [None]
  - Arthralgia [None]
  - Depression [None]
  - Insomnia [None]
  - Abdominal pain upper [None]
  - Irritability [None]
  - Loss of personal independence in daily activities [None]
  - Blood creatine phosphokinase increased [Recovered/Resolved]
  - Headache [None]

NARRATIVE: CASE EVENT DATE: 20170313
